FAERS Safety Report 6808915-1 (Version None)
Quarter: 2010Q2

REPORT INFORMATION
  Report Type: 
  Country: None (occurrence: None)
  Receive Date: 20100630
  Receipt Date: 20091110
  Transmission Date: 20101027
  Serious: No
  Sender: FDA-Public Use
  Company Number: US-PFIZER INC-2009283093

PATIENT

DRUGS (2)
  1. MEDROL [Suspect]
     Indication: RASH
     Route: 048
  2. BENADRYL [Concomitant]
     Indication: RASH

REACTIONS (1)
  - DRUG INEFFECTIVE [None]
